FAERS Safety Report 16970383 (Version 1)
Quarter: 2019Q4

REPORT INFORMATION
  Report Type: Spontaneous
  Country: US (occurrence: US)
  Receive Date: 20191029
  Receipt Date: 20191029
  Transmission Date: 20200122
  Serious: Yes (Other)
  Sender: FDA-Public Use
  Company Number: US-EPIC PHARMA LLC-2019EPC00299

PATIENT
  Age: 53 Year
  Sex: Female
  Weight: 86.17 kg

DRUGS (6)
  1. SULINDAC. [Suspect]
     Active Substance: SULINDAC
     Indication: PAIN IN EXTREMITY
  2. ETODOLAC. [Concomitant]
     Active Substance: ETODOLAC
  3. SULINDAC. [Suspect]
     Active Substance: SULINDAC
     Indication: ANKYLOSING SPONDYLITIS
     Dosage: 200 MG, 2X/DAY
     Route: 048
     Dates: start: 20191003, end: 20191007
  4. APTIOM [Concomitant]
     Active Substance: ESLICARBAZEPINE ACETATE
     Dosage: 1200 MG, 1X/DAY AT HS
  5. KEPPRA [Concomitant]
     Active Substance: LEVETIRACETAM
  6. SERTRALINE [Concomitant]
     Active Substance: SERTRALINE HYDROCHLORIDE

REACTIONS (3)
  - Focal dyscognitive seizures [Recovered/Resolved]
  - Seizure [Recovered/Resolved]
  - Hypertension [Recovered/Resolved]

NARRATIVE: CASE EVENT DATE: 201910
